FAERS Safety Report 19606932 (Version 2)
Quarter: 2021Q3

REPORT INFORMATION
  Report Type: Report from Study
  Country: None (occurrence: US)
  Receive Date: 20210725
  Receipt Date: 20210901
  Transmission Date: 20211014
  Serious: Yes (Other)
  Sender: FDA-Public Use
  Company Number: US-ABBVIE-21K-163-4003305-00

PATIENT
  Sex: Male

DRUGS (3)
  1. PFIZER?BIONTECH COVID?19 VACCINE [Concomitant]
     Active Substance: TOZINAMERAN
     Indication: COVID-19 IMMUNISATION
     Dosage: PFIZER/BIONTECH
     Route: 030
  2. HUMIRA [Suspect]
     Active Substance: ADALIMUMAB
     Indication: CROHN^S DISEASE
     Route: 058
  3. HUMIRA [Suspect]
     Active Substance: ADALIMUMAB
     Route: 058

REACTIONS (8)
  - Hernia [Recovered/Resolved]
  - Impaired healing [Unknown]
  - Gastrointestinal stoma complication [Recovered/Resolved]
  - Insomnia [Recovering/Resolving]
  - Intestinal prolapse [Unknown]
  - Gastrointestinal disorder [Not Recovered/Not Resolved]
  - Anxiety [Recovering/Resolving]
  - Renal disorder [Recovered/Resolved]

NARRATIVE: CASE EVENT DATE: 2018
